FAERS Safety Report 8264174-7 (Version None)
Quarter: 2012Q2

REPORT INFORMATION
  Report Type: 
  Country: None (occurrence: None)
  Receive Date: 20120403
  Receipt Date: 20120328
  Transmission Date: 20120825
  Serious: No
  Sender: FDA-Public Use
  Company Number: C-12-021

PATIENT
  Sex: Male
  Weight: 68.0396 kg

DRUGS (1)
  1. PHENTERMINE HCL [Suspect]
     Indication: WEIGHT INCREASED
     Dosage: 37.5 MG, 1-2/DAY
     Dates: start: 20120318, end: 20120328

REACTIONS (2)
  - PENIS DISORDER [None]
  - FEELING ABNORMAL [None]
